FAERS Safety Report 22196305 (Version 1)
Quarter: 2023Q2

REPORT INFORMATION
  Report Type: Other
  Country: US (occurrence: US)
  Receive Date: 20230411
  Receipt Date: 20230411
  Transmission Date: 20230721
  Serious: Yes (Death)
  Sender: FDA-Public Use
  Company Number: US-ALVOGEN-2023089883

PATIENT
  Age: 39 Year
  Sex: Female

DRUGS (6)
  1. FENTANYL [Suspect]
     Active Substance: FENTANYL
     Indication: Suicide attempt
  2. SERTRALINE [Suspect]
     Active Substance: SERTRALINE HYDROCHLORIDE
     Indication: Suicide attempt
  3. METHAMPHETAMINE [Suspect]
     Active Substance: METHAMPHETAMINE
     Indication: Suicide attempt
  4. COCAINE [Suspect]
     Active Substance: COCAINE
     Indication: Suicide attempt
  5. ALPRAZOLAM [Suspect]
     Active Substance: ALPRAZOLAM
     Indication: Suicide attempt
  6. ALCOHOL [Suspect]
     Active Substance: ALCOHOL
     Indication: Suicide attempt

REACTIONS (2)
  - Completed suicide [Fatal]
  - Prescription drug used without a prescription [Unknown]
